FAERS Safety Report 4375363-6 (Version None)
Quarter: 2004Q2

REPORT INFORMATION
  Report Type: 
  Country: None (occurrence: None)
  Receive Date: 20040607
  Receipt Date: 20040526
  Transmission Date: 20050107
  Serious: Yes (Hospitalization, Other)
  Sender: FDA-Public Use
  Company Number: 163-20785-04050701

PATIENT
  Age: 61 Year
  Sex: Male

DRUGS (1)
  1. THALOMID (THALIDOMIDE) (CAPSULES) [Suspect]
     Dosage: ORAL
     Route: 048
     Dates: end: 20040503

REACTIONS (1)
  - SPLEEN OPERATION [None]
